FAERS Safety Report 5636415-3 (Version None)
Quarter: 2008Q1

REPORT INFORMATION
  Report Type: 
  Country: None (occurrence: None)
  Receive Date: 20080225
  Receipt Date: 20071219
  Transmission Date: 20080703
  Serious: No
  Sender: FDA-Public Use
  Company Number: A0699788A

PATIENT
  Age: 38 Year
  Sex: Male

DRUGS (3)
  1. VERAMYST [Suspect]
     Dosage: 1SPR PER DAY
     Route: 045
     Dates: start: 20071025, end: 20071101
  2. PREVACID [Concomitant]
  3. CENTRUM MULTIVITAMIN [Concomitant]

REACTIONS (3)
  - ARTHRALGIA [None]
  - CONTUSION [None]
  - FACIAL PAIN [None]
